FAERS Safety Report 22666373 (Version 2)
Quarter: 2023Q4

REPORT INFORMATION
  Report Type: Report from Study
  Country: US (occurrence: US)
  Receive Date: 20230703
  Receipt Date: 20231107
  Transmission Date: 20240109
  Serious: Yes (Other)
  Sender: FDA-Public Use
  Company Number: US-UCBSA-2023033072

PATIENT
  Age: 58 Year
  Sex: Male

DRUGS (2)
  1. CERTOLIZUMAB PEGOL [Suspect]
     Active Substance: CERTOLIZUMAB PEGOL
     Indication: Ankylosing spondylitis
     Dosage: LYO POWDER 200 MILLIGRAM 2 SYRINGES, EV 4 WEEKS
  2. CERTOLIZUMAB PEGOL [Suspect]
     Active Substance: CERTOLIZUMAB PEGOL
     Dosage: 200 MILLIGRAM, EV 2 WEEKS(QOW), LYO POWDER, 200 MILLIGRAM 1 SYRINGE, EV 2 WEEKS(QOW)

REACTIONS (14)
  - Cerebrovascular accident [Unknown]
  - Myocardial infarction [Unknown]
  - Intracranial aneurysm [Unknown]
  - Vascular graft [Unknown]
  - Near death experience [Unknown]
  - Arthritis [Unknown]
  - Back injury [Unknown]
  - Blood cholesterol abnormal [Unknown]
  - Arthralgia [Not Recovered/Not Resolved]
  - Spinal pain [Not Recovered/Not Resolved]
  - Gait disturbance [Not Recovered/Not Resolved]
  - Product dose omission issue [Unknown]
  - Therapy interrupted [Unknown]
  - Product availability issue [Unknown]

NARRATIVE: CASE EVENT DATE: 20221001
